FAERS Safety Report 13070332 (Version 1)
Quarter: 2016Q4

REPORT INFORMATION
  Report Type: Spontaneous
  Country: US (occurrence: US)
  Receive Date: 20161228
  Receipt Date: 20161228
  Transmission Date: 20170207
  Serious: No
  Sender: FDA-Public Use
  Company Number: US-ASTRAZENECA-2016SF35787

PATIENT
  Age: 858 Month
  Sex: Male
  Weight: 74.8 kg

DRUGS (4)
  1. PLAVIX [Concomitant]
     Active Substance: CLOPIDOGREL BISULFATE
  2. BRILINTA [Suspect]
     Active Substance: TICAGRELOR
     Indication: STENT PLACEMENT
     Route: 048
     Dates: start: 20161216
  3. OMEPRAZOLE OTC [Suspect]
     Active Substance: OMEPRAZOLE
     Indication: ABDOMINAL DISCOMFORT
     Route: 048
  4. BABY ASPIRIN [Concomitant]
     Active Substance: ASPIRIN
     Indication: ADJUVANT THERAPY
     Route: 048
     Dates: start: 20161216

REACTIONS (4)
  - Product substitution issue [Unknown]
  - Dyspnoea [Unknown]
  - Chest discomfort [Unknown]
  - Tracheal obstruction [Unknown]

NARRATIVE: CASE EVENT DATE: 201612
